FAERS Safety Report 17859463 (Version 5)
Quarter: 2020Q3

REPORT INFORMATION
  Report Type: Report from Study
  Country: FR (occurrence: FR)
  Receive Date: 20200604
  Receipt Date: 20200813
  Transmission Date: 20201103
  Serious: Yes (Life-Threatening, Other)
  Sender: FDA-Public Use
  Company Number: FR-ADVANZ PHARMA-202005006112

PATIENT

DRUGS (16)
  1. ZITHROMAX [Suspect]
     Active Substance: AZITHROMYCIN DIHYDRATE
     Dosage: 250 MG
     Route: 048
     Dates: start: 20200412, end: 20200416
  2. HYDROXYCHLOROQUINE [Suspect]
     Active Substance: HYDROXYCHLOROQUINE
     Indication: COVID-19
     Dosage: 600 MG, QD
     Route: 042
     Dates: start: 20200412, end: 20200421
  3. ZITHROMAX [Suspect]
     Active Substance: AZITHROMYCIN DIHYDRATE
     Indication: COVID-19
     Dosage: 250 MG, COATED TABLET
     Route: 048
     Dates: start: 20200412, end: 20200416
  4. AMLOR [Concomitant]
     Active Substance: AMLODIPINE BESYLATE
     Dosage: UNK
  5. CEFEPIME [Concomitant]
     Active Substance: CEFEPIME HYDROCHLORIDE
     Dosage: UNK
  6. TERCIAN [Concomitant]
     Active Substance: CYAMEMAZINE
     Dosage: UNK
  7. MEROPENEM. [Concomitant]
     Active Substance: MEROPENEM
     Dosage: UNK
     Dates: start: 20200428
  8. VANCOMYCIN [Concomitant]
     Active Substance: VANCOMYCIN
     Dosage: UNK
     Dates: start: 20200428
  9. CLOXACILLINE [Concomitant]
     Active Substance: CLOXACILLIN
     Dosage: UNK
  10. SEVOFLURANE. [Concomitant]
     Active Substance: SEVOFLURANE
     Dosage: UNK
  11. KEVZARA [Suspect]
     Active Substance: SARILUMAB
     Indication: COVID-19
     Dosage: 400 MG, QD, INJECTABLE SYRINGE
     Route: 042
     Dates: start: 20200412, end: 20200414
  12. FUROSEMIDE. [Concomitant]
     Active Substance: FUROSEMIDE
     Dosage: UNK
  13. RAMIPRIL. [Concomitant]
     Active Substance: RAMIPRIL
     Dosage: UNK
  14. CASPOFUNGINE [Concomitant]
     Active Substance: CASPOFUNGIN
     Dosage: UNK
     Dates: start: 20200428
  15. ENOXAPARIN [Concomitant]
     Active Substance: ENOXAPARIN
     Dosage: UNK
  16. AMIKACINE [Concomitant]
     Active Substance: AMIKACIN
     Dosage: UNK
     Dates: start: 20200428

REACTIONS (11)
  - Pneumonia bacterial [Recovered/Resolved]
  - Off label use [Unknown]
  - Incorrect route of product administration [Unknown]
  - Device related sepsis [Recovered/Resolved]
  - Delftia acidovorans infection [Recovered/Resolved]
  - Enterococcal infection [Recovered/Resolved]
  - Septic shock [Recovered/Resolved]
  - Acute respiratory distress syndrome [Recovered/Resolved]
  - Staphylococcal infection [Recovered/Resolved]
  - Septic shock [Recovered/Resolved]
  - Pseudomonas infection [Recovered/Resolved]

NARRATIVE: CASE EVENT DATE: 20200412
